FAERS Safety Report 7898645-X (Version None)
Quarter: 2011Q4

REPORT INFORMATION
  Report Type: 
  Country: None (occurrence: None)
  Receive Date: 20111103
  Receipt Date: 20111020
  Transmission Date: 20120403
  Serious: Yes (Disabling, Other)
  Sender: FDA-Public Use
  Company Number: 2011S1001179

PATIENT
  Age: 64 Year
  Sex: Male
  Weight: 77.1 kg

DRUGS (4)
  1. LIVALO [Suspect]
     Indication: HYPERCHOLESTEROLAEMIA
     Dosage: 2 MG;1X;PO
     Route: 048
     Dates: start: 20110622, end: 20110728
  2. ENALAPRIL MALEATE [Concomitant]
  3. TANATRIL [Concomitant]
  4. ADALAT [Concomitant]

REACTIONS (5)
  - BLOOD CREATINE PHOSPHOKINASE INCREASED [None]
  - MUSCULAR WEAKNESS [None]
  - CHROMATURIA [None]
  - MUSCULOSKELETAL PAIN [None]
  - HYPOAESTHESIA [None]
